FAERS Safety Report 25717940 (Version 1)
Quarter: 2025Q3

REPORT INFORMATION
  Report Type: Report from Study
  Country: US (occurrence: US)
  Receive Date: 20250822
  Receipt Date: 20250822
  Transmission Date: 20251021
  Serious: Yes (Death, Other)
  Sender: GILEAD
  Company Number: US-GILEAD-2025-0725515

PATIENT

DRUGS (1)
  1. IDELALISIB [Suspect]
     Active Substance: IDELALISIB
     Indication: Lymphocytic leukaemia
     Dosage: 150 MG TABS; TAKE 1 TABLET ONCE DAILY.
     Route: 065

REACTIONS (1)
  - Death [Fatal]
